FAERS Safety Report 6992851-4 (Version None)
Quarter: 2010Q3

REPORT INFORMATION
  Report Type: 
  Country: None (occurrence: None)
  Receive Date: 20100917
  Receipt Date: 20100910
  Transmission Date: 20110219
  Serious: Yes (Hospitalization)
  Sender: FDA-Public Use
  Company Number: B0582520A

PATIENT
  Sex: Male
  Weight: 80 kg

DRUGS (5)
  1. PAROXETINE HCL [Suspect]
     Indication: DEPRESSION
     Dosage: 10MG PER DAY
     Route: 065
     Dates: start: 20090501, end: 20090511
  2. AMILCO [Suspect]
     Indication: HYPERTENSION
     Route: 048
     Dates: start: 20090501
  3. NICOTINE [Concomitant]
     Route: 002
     Dates: end: 20090515
  4. SERTRALINE HYDROCHLORIDE [Concomitant]
  5. MIANSERIN [Concomitant]

REACTIONS (6)
  - BLOOD SODIUM DECREASED [None]
  - CONVULSION [None]
  - DEPRESSION [None]
  - HYPERTENSION [None]
  - HYPONATRAEMIA [None]
  - LISTLESS [None]
